FAERS Safety Report 5759202-4 (Version None)
Quarter: 2008Q2

REPORT INFORMATION
  Report Type: 
  Country: None (occurrence: None)
  Receive Date: 20080604
  Receipt Date: 20080526
  Transmission Date: 20081010
  Serious: Yes (Hospitalization)
  Sender: FDA-Public Use
  Company Number: JP-PFIZER INC-2008042488

PATIENT
  Age: 68 Year
  Sex: Male

DRUGS (13)
  1. NORVASC [Suspect]
     Indication: HYPERTENSION
     Dosage: DAILY DOSE:5MG
     Route: 048
  2. NORVASC [Suspect]
  3. PROHEPARUM [Concomitant]
     Route: 048
  4. PROHEPARUM [Concomitant]
  5. SEVEN EP [Concomitant]
     Route: 048
  6. NEUER [Concomitant]
     Route: 048
  7. BUSCOPAN [Concomitant]
     Route: 048
  8. DASEN [Concomitant]
     Route: 048
  9. LOPERAMIDE HCL [Concomitant]
     Route: 048
  10. DEPAS [Concomitant]
     Route: 048
  11. LOXONIN [Concomitant]
     Route: 048
  12. HOKUNALIN [Concomitant]
     Route: 062
  13. DEQUALINIUM CHLORIDE [Concomitant]
     Route: 048

REACTIONS (2)
  - DISSEMINATED INTRAVASCULAR COAGULATION [None]
  - SEPTIC SHOCK [None]
